FAERS Safety Report 9547031 (Version 1)
Quarter: 2013Q2

REPORT INFORMATION
  Report Type: Spontaneous
  Country: US (occurrence: None)
  Receive Date: 20130606
  Receipt Date: 20130606
  Transmission Date: 20140414
  Serious: No
  Sender: FDA-Public Use
  Company Number: 163-POMAL-13051306

PATIENT
  Age: 81 Year
  Sex: Female

DRUGS (2)
  1. POMALYST [Suspect]
     Indication: PLASMA CELL MYELOMA
     Route: 048
     Dates: start: 20130423
  2. IRON [Concomitant]

REACTIONS (6)
  - Frequent bowel movements [None]
  - Gastrointestinal tract irritation [None]
  - Gastrointestinal inflammation [None]
  - Diarrhoea [None]
  - Asthenia [None]
  - Constipation [None]
